FAERS Safety Report 5058602-8 (Version None)
Quarter: 2006Q2

REPORT INFORMATION
  Report Type: 
  Country: None (occurrence: None)
  Receive Date: 20060627
  Receipt Date: 20060412
  Transmission Date: 20061013
  Serious: Yes (Hospitalization)
  Sender: FDA-Public Use
  Company Number: 444216

PATIENT
  Age: 80 Year
  Sex: Male
  Weight: 86.2 kg

DRUGS (1)
  1. XELODA [Suspect]
     Indication: COLON CANCER METASTATIC
     Dosage: 5000 MG DAILY ORAL
     Route: 048
     Dates: start: 20051215, end: 20060317

REACTIONS (11)
  - AGEUSIA [None]
  - CONSTIPATION [None]
  - DEHYDRATION [None]
  - DIARRHOEA [None]
  - FATIGUE [None]
  - FLUSHING [None]
  - NAUSEA [None]
  - OEDEMA PERIPHERAL [None]
  - PALMAR-PLANTAR ERYTHRODYSAESTHESIA SYNDROME [None]
  - RASH [None]
  - VOMITING [None]
